FAERS Safety Report 5880267-3 (Version None)
Quarter: 2008Q3

REPORT INFORMATION
  Report Type: 
  Country: None (occurrence: None)
  Receive Date: 20080912
  Receipt Date: 20080306
  Transmission Date: 20090109
  Serious: No
  Sender: FDA-Public Use
  Company Number: US-BAYER-200816385NA

PATIENT
  Sex: Male
  Weight: 118 kg

DRUGS (6)
  1. ULTRAVIST 370 [Suspect]
     Indication: ARTERIOGRAM RENAL
     Route: 042
  2. STARLIX [Concomitant]
  3. ASPIRIN [Concomitant]
  4. PLAVIX [Concomitant]
  5. VYTORIN [Concomitant]
  6. LISINOPRIL [Concomitant]

REACTIONS (4)
  - DYSPHAGIA [None]
  - EAR PRURITUS [None]
  - FLUSHING [None]
  - PRURITUS [None]
